FAERS Safety Report 11335737 (Version 3)
Quarter: 2015Q3

REPORT INFORMATION
  Report Type: Report from Study
  Country: US (occurrence: US)
  Receive Date: 20150804
  Receipt Date: 20150925
  Transmission Date: 20151125
  Serious: Yes (Hospitalization)
  Sender: FDA-Public Use
  Company Number: US-TEVA-582370USA

PATIENT
  Age: 46 Year
  Sex: Female
  Weight: 90.7 kg

DRUGS (24)
  1. DOXORUBICIN [Suspect]
     Active Substance: DOXORUBICIN
     Indication: TRIPLE NEGATIVE BREAST CANCER
     Dosage: DAY 1 OF FOUR 14-DAY CYCLE DURING CHEMOTHERAPY SEGMENT 2
     Route: 042
     Dates: start: 20150625, end: 20150625
  2. PACLITAXEL. [Suspect]
     Active Substance: PACLITAXEL
     Indication: TRIPLE NEGATIVE BREAST CANCER
     Dosage: DAY 1 OF 12 WEEKLY CYCLES DURING CHEMOTHERAPY SEGMENT 1
     Route: 042
     Dates: start: 20150327, end: 20150501
  3. POTASSIUM [Concomitant]
     Active Substance: POTASSIUM
     Dosage: 20 MILLIEQUIVALENTS DAILY;
     Dates: start: 20150621
  4. CYCLOPHOSPHAMIDE. [Suspect]
     Active Substance: CYCLOPHOSPHAMIDE
     Dosage: DAY 1 OF FOUR 14-DAY CYCLE DURING CHEMOTHERAPY SEGMENT 2
     Route: 042
     Dates: start: 20150724
  5. DEXAMETHASONE. [Concomitant]
     Active Substance: DEXAMETHASONE
     Indication: PROPHYLAXIS
     Route: 042
     Dates: start: 20150327, end: 20150529
  6. IMODIUM [Concomitant]
     Active Substance: LOPERAMIDE HYDROCHLORIDE
     Indication: DIARRHOEA
     Route: 048
     Dates: start: 20150408
  7. CARBOPLATIN. [Suspect]
     Active Substance: CARBOPLATIN
     Indication: TRIPLE NEGATIVE BREAST CANCER
     Dosage: DAY 1 OF 21-DAY CYCLES DURING CHEMOTHERAPY SEGMENT 1
     Route: 042
     Dates: start: 20150327
  8. ABT-888 (VELIPARIB) [Suspect]
     Active Substance: VELIPARIB
     Indication: TRIPLE NEGATIVE BREAST CANCER
     Dosage: DAILY THROUGH CHEMOTHERAPY SEGMENT 1
     Route: 048
     Dates: start: 20150327, end: 20150618
  9. CYCLOPHOSPHAMIDE. [Suspect]
     Active Substance: CYCLOPHOSPHAMIDE
     Indication: TRIPLE NEGATIVE BREAST CANCER
     Dosage: DAY 1 OF FOUR 14-DAY CYCLE DURING CHEMOTHERAPY SEGMENT 2
     Route: 042
     Dates: start: 20150625, end: 20150625
  10. DEXAMETHASONE. [Concomitant]
     Active Substance: DEXAMETHASONE
     Indication: ANTIEMETIC SUPPORTIVE CARE
     Dosage: DAYS 2 AND 3 AFTER CHEMO
     Route: 048
     Dates: start: 20150328
  11. DOXORUBICIN [Suspect]
     Active Substance: DOXORUBICIN
     Dosage: DAY 1 OF FOUR 14-DAY CYCLE DURING CHEMOTHERAPY SEGMENT 2
     Route: 042
     Dates: start: 20150710, end: 20150710
  12. DOXORUBICIN [Suspect]
     Active Substance: DOXORUBICIN
     Dosage: DAY 1 OF FOUR 14-DAY CYCLE DURING CHEMOTHERAPY SEGMENT 2
     Route: 042
     Dates: start: 20150724
  13. ALOXI [Concomitant]
     Active Substance: PALONOSETRON HYDROCHLORIDE
     Indication: PROPHYLAXIS OF NAUSEA AND VOMITING
     Route: 042
     Dates: start: 20150327
  14. PROTONIX [Concomitant]
     Active Substance: PANTOPRAZOLE SODIUM
     Indication: DYSPEPSIA
     Dosage: 40 MILLIGRAM DAILY;
     Route: 048
     Dates: start: 20150404
  15. EMEND [Concomitant]
     Active Substance: APREPITANT
     Indication: ANTIEMETIC SUPPORTIVE CARE
     Route: 042
     Dates: start: 20150625
  16. NEULASTA [Concomitant]
     Active Substance: PEGFILGRASTIM
     Indication: PROPHYLAXIS
     Dosage: 24 HRS AFTER AC ADMINISTRATION
     Route: 058
     Dates: start: 20150626, end: 20150808
  17. PACLITAXEL. [Suspect]
     Active Substance: PACLITAXEL
     Dosage: DAY 1 OF 12 WEEKLY CYCLES DURING CHEMOTHERAPY SEGMENT 1
     Route: 042
     Dates: start: 20150522, end: 20150529
  18. DEXAMETHASONE. [Concomitant]
     Active Substance: DEXAMETHASONE
     Dosage: PR1OR TO AC
     Route: 042
     Dates: start: 20150625
  19. PACLITAXEL. [Suspect]
     Active Substance: PACLITAXEL
     Dosage: DAY 1 OF 12 WEEKLY CYCLES DURING CHEMOTHERAPY SEGMENT 1
     Route: 042
     Dates: start: 20150508, end: 20150508
  20. CYCLOPHOSPHAMIDE. [Suspect]
     Active Substance: CYCLOPHOSPHAMIDE
     Dosage: DAY 1 OF FOUR 14-DAY CYCLE DURING CHEMOTHERAPY SEGMENT 2
     Route: 042
     Dates: start: 20150710, end: 20150710
  21. XANAX [Concomitant]
     Active Substance: ALPRAZOLAM
     Indication: ANXIETY
     Route: 048
     Dates: start: 20150323
  22. V-R VITAMIN C [Concomitant]
     Indication: JOINT INJURY
     Dosage: 1000 MILLIGRAM DAILY;
     Route: 048
     Dates: start: 20150304
  23. TRAZODONE [Concomitant]
     Active Substance: TRAZODONE HYDROCHLORIDE
     Indication: INSOMNIA
     Route: 048
     Dates: start: 20150403
  24. POTASSIUM [Concomitant]
     Active Substance: POTASSIUM
     Indication: DIARRHOEA
     Dosage: 80 MILLIEQUIVALENTS DAILY; 2 TABS BID FOR 2 DAYS THEN 1 DAILY
     Route: 048
     Dates: start: 20150619

REACTIONS (1)
  - Febrile neutropenia [Recovered/Resolved]

NARRATIVE: CASE EVENT DATE: 20150703
